FAERS Safety Report 8245009-5 (Version None)
Quarter: 2012Q1

REPORT INFORMATION
  Report Type: 
  Country: None (occurrence: None)
  Receive Date: 20120329
  Receipt Date: 20120320
  Transmission Date: 20120608
  Serious: Yes (Hospitalization)
  Sender: FDA-Public Use
  Company Number: PR-ABBOTT-12P-131-0913933-00

PATIENT
  Sex: Male
  Weight: 50.848 kg

DRUGS (2)
  1. HUMIRA [Suspect]
     Indication: RHEUMATOID ARTHRITIS
     Route: 058
  2. FOSAMAX [Concomitant]
     Indication: OSTEOPOROSIS
     Route: 048

REACTIONS (6)
  - DECREASED APPETITE [None]
  - ABASIA [None]
  - JAUNDICE [None]
  - URINARY RETENTION [None]
  - LEPTOSPIROSIS [None]
  - ASTHENIA [None]
